FAERS Safety Report 23629357 (Version 1)
Quarter: 2024Q1

REPORT INFORMATION
  Report Type: Report from Study
  Country: US (occurrence: US)
  Receive Date: 20240313
  Receipt Date: 20240313
  Transmission Date: 20240410
  Serious: Yes (Other)
  Sender: FDA-Public Use
  Company Number: US-ABBVIE-5676026

PATIENT
  Sex: Male

DRUGS (2)
  1. IMBRUVICA [Suspect]
     Active Substance: IBRUTINIB
     Indication: Chronic lymphocytic leukaemia
     Dosage: 140 MG CAPSULE
     Route: 048
     Dates: start: 20160518, end: 20180331
  2. IMBRUVICA [Suspect]
     Active Substance: IBRUTINIB
     Indication: Chronic lymphocytic leukaemia
     Dosage: 420 MG TABLETS
     Route: 048
     Dates: start: 20180401

REACTIONS (6)
  - Fistula [Unknown]
  - Surgery [Unknown]
  - Bloody discharge [Unknown]
  - Post procedural inflammation [Unknown]
  - Depression [Unknown]
  - Procedural pain [Unknown]
